FAERS Safety Report 16874051 (Version 2)
Quarter: 2019Q4

REPORT INFORMATION
  Report Type: Spontaneous
  Country: US (occurrence: US)
  Receive Date: 20191001
  Receipt Date: 20191110
  Transmission Date: 20200122
  Serious: Yes (Other)
  Sender: FDA-Public Use
  Company Number: PHEH2019US038475

PATIENT
  Sex: Female
  Weight: 11.6 kg

DRUGS (1)
  1. ZOLGENSMA [Suspect]
     Active Substance: ONASEMNOGENE ABEPARVOVEC-XIOI
     Indication: SPINAL MUSCULAR ATROPHY
     Dosage: UNK UNK, ONCE/SINGLE
     Route: 042
     Dates: start: 20190904, end: 20190904

REACTIONS (1)
  - Platelet count decreased [Unknown]

NARRATIVE: CASE EVENT DATE: 20190911
